FAERS Safety Report 11794457 (Version 2)
Quarter: 2016Q1

REPORT INFORMATION
  Report Type: Report from Study
  Country: JP (occurrence: JP)
  Receive Date: 20151202
  Receipt Date: 20160125
  Transmission Date: 20160525
  Serious: Yes (Death, Other)
  Sender: FDA-Public Use
  Company Number: JP-OTSUKA-2015_015345

PATIENT
  Age: 84 Year
  Sex: Female
  Weight: 59.7 kg

DRUGS (6)
  1. LASIX M [Concomitant]
     Active Substance: FUROSEMIDE
     Indication: FLUID RETENTION
     Dosage: 5 MG/DAY
     Route: 048
     Dates: end: 20150917
  2. ALDACTONE A [Concomitant]
     Active Substance: SPIRONOLACTONE
     Indication: FLUID RETENTION
     Dosage: 25 MG/DAY
     Route: 048
     Dates: end: 20150917
  3. TOLVAPTAN [Suspect]
     Active Substance: TOLVAPTAN
     Indication: FLUID RETENTION
     Dosage: 7.5 MG, QD, IN THE MORNING
     Route: 048
     Dates: start: 20150915, end: 20150917
  4. ISOLEUCINE W/LEUCINE/VALINE [Concomitant]
     Active Substance: ISOLEUCINE\LEUCINE\VALINE
     Indication: HEPATIC ENCEPHALOPATHY PROPHYLAXIS
     Dosage: 13.5 G/DAY
     Route: 048
     Dates: end: 20150917
  5. KANAMYCIN [Concomitant]
     Active Substance: KANAMYCIN\KANAMYCIN A SULFATE
     Indication: HEPATIC ENCEPHALOPATHY PROPHYLAXIS
     Dosage: 1.5 G/DAY
     Route: 048
     Dates: end: 20150917
  6. LACTULOSE. [Concomitant]
     Active Substance: LACTULOSE
     Indication: HEPATIC ENCEPHALOPATHY PROPHYLAXIS
     Dosage: 90 ML, DAILY DOSE
     Route: 048
     Dates: end: 20150917

REACTIONS (2)
  - Thirst [Recovering/Resolving]
  - Pneumonia aspiration [Fatal]

NARRATIVE: CASE EVENT DATE: 20150915
